FAERS Safety Report 14742052 (Version 1)
Quarter: 2018Q2

REPORT INFORMATION
  Report Type: Spontaneous
  Country: GB (occurrence: GB)
  Receive Date: 20180410
  Receipt Date: 20180410
  Transmission Date: 20180711
  Serious: Yes (Life-Threatening, Hospitalization, Disabling, Other)
  Sender: FDA-Public Use
  Company Number: GB-PFIZER INC-2018142890

PATIENT
  Age: 49 Year
  Sex: Female
  Weight: 70.5 kg

DRUGS (3)
  1. CANDESARTAN CILEXETIL. [Concomitant]
     Active Substance: CANDESARTAN CILEXETIL
     Dosage: UNK
  2. AMLODIPINE BESILATE [Suspect]
     Active Substance: AMLODIPINE BESYLATE
     Indication: HYPERTENSION
     Dosage: 5MG UNIT DOSE
     Route: 048
     Dates: start: 20170503, end: 20180203
  3. AMLODIPINE BESILATE [Suspect]
     Active Substance: AMLODIPINE BESYLATE
     Dosage: 10MG UNIT DOSE
     Route: 048
     Dates: start: 20180204

REACTIONS (16)
  - Respiration abnormal [Recovering/Resolving]
  - Joint swelling [Recovering/Resolving]
  - Feeling abnormal [Recovering/Resolving]
  - Feeling cold [Recovering/Resolving]
  - Paraesthesia [Recovering/Resolving]
  - Bone pain [Recovering/Resolving]
  - Rotator cuff syndrome [Unknown]
  - Pollakiuria [Recovering/Resolving]
  - Blood potassium decreased [Unknown]
  - Palpitations [Recovering/Resolving]
  - Gingival bleeding [Not Recovered/Not Resolved]
  - Musculoskeletal pain [Recovering/Resolving]
  - Neck pain [Unknown]
  - Periodontal disease [Not Recovered/Not Resolved]
  - Fatigue [Recovering/Resolving]
  - Apathy [Recovering/Resolving]

NARRATIVE: CASE EVENT DATE: 20170503
